FAERS Safety Report 9666297 (Version 1)
Quarter: 2013Q4

REPORT INFORMATION
  Report Type: Spontaneous
  Country: HR (occurrence: HR)
  Receive Date: 20131104
  Receipt Date: 20131104
  Transmission Date: 20140711
  Serious: Yes (Other)
  Sender: FDA-Public Use
  Company Number: PHHY2013HR120350

PATIENT
  Age: 82 Year
  Sex: Female
  Weight: 60 kg

DRUGS (4)
  1. BYOL COR [Suspect]
     Indication: HYPERTENSION
     Dosage: 2.5 MG, QD
     Route: 048
     Dates: start: 20131010, end: 20131011
  2. TRITACE [Concomitant]
     Dosage: 2.5 MG, QD
     Route: 048
  3. ALDACTONE [Concomitant]
     Dosage: 50 MG, UNK
     Route: 048
  4. ANDOL [Concomitant]
     Dosage: 100 MG, UNK
     Route: 048

REACTIONS (5)
  - Heart rate increased [Recovered/Resolved]
  - Tinnitus [Recovered/Resolved]
  - Fear [Recovered/Resolved]
  - Syncope [Recovered/Resolved]
  - Asthenia [Recovered/Resolved]
